FAERS Safety Report 8765700 (Version 1)
Quarter: 2012Q4

REPORT INFORMATION
  Report Type: 
  Country: BR (occurrence: BR)
  Receive Date: 20120904
  Receipt Date: 20120904
  Transmission Date: 20130627
  Serious: Yes (Other)
  Sender: FDA-Public Use
  Company Number: PHHY2012BR075550

PATIENT
  Age: 68 Year
  Sex: Female

DRUGS (7)
  1. FORASEQ [Suspect]
     Dosage: UNK UKN, BID
  2. ONBREZ [Suspect]
     Dosage: 150 ug, QD
  3. ONBREZ [Suspect]
     Dosage: 300 ug, daily
  4. SPIRIVA [Concomitant]
     Dosage: UNK UKN, UNK
  5. OXYGEN THERAPY [Concomitant]
     Dosage: UNK UKN, CONT
  6. OXYGEN THERAPY [Concomitant]
     Dosage: UNK UKN, QHS
  7. MOMETASONE [Concomitant]
     Dosage: 400 ug, daily

REACTIONS (2)
  - Respiratory tract infection [Recovering/Resolving]
  - Condition aggravated [Recovering/Resolving]
